FAERS Safety Report 16740846 (Version 9)
Quarter: 2020Q3

REPORT INFORMATION
  Report Type: Spontaneous
  Country: US (occurrence: US)
  Receive Date: 20190826
  Receipt Date: 20200730
  Transmission Date: 20201102
  Serious: No
  Sender: FDA-Public Use
  Company Number: US-ACTELION-A-NJ2019-194667

PATIENT
  Sex: Female
  Weight: 68.93 kg

DRUGS (7)
  1. UPTRAVI [Suspect]
     Active Substance: SELEXIPAG
     Indication: PULMONARY ARTERIAL HYPERTENSION
     Dosage: 200 MCG, BID
     Route: 048
  2. UPTRAVI [Suspect]
     Active Substance: SELEXIPAG
     Dosage: 1400 MCG, BID
     Route: 048
  3. UPTRAVI [Suspect]
     Active Substance: SELEXIPAG
     Dosage: 1200 MCG, BID
     Route: 048
  4. UPTRAVI [Suspect]
     Active Substance: SELEXIPAG
     Dosage: 1000 MCG, BID
     Route: 048
  5. OPSUMIT [Suspect]
     Active Substance: MACITENTAN
     Indication: PULMONARY ARTERIAL HYPERTENSION
     Dosage: 10 MG, QD
     Route: 048
  6. ELIQUIS [Concomitant]
     Active Substance: APIXABAN
  7. SILDENAFIL CITRATE. [Concomitant]
     Active Substance: SILDENAFIL CITRATE

REACTIONS (14)
  - Fluid retention [Recovering/Resolving]
  - Asthenia [Unknown]
  - Loss of consciousness [Unknown]
  - Dyspnoea [Unknown]
  - Localised oedema [Unknown]
  - Headache [Unknown]
  - Syncope [Unknown]
  - Fatigue [Unknown]
  - Pulmonary oedema [Unknown]
  - Product dose omission issue [Unknown]
  - Dizziness [Unknown]
  - Diarrhoea [Unknown]
  - Malaise [Unknown]
  - Rehabilitation therapy [Recovered/Resolved]
